FAERS Safety Report 6956627-6 (Version None)
Quarter: 2010Q3

REPORT INFORMATION
  Report Type: 
  Country: None (occurrence: None)
  Receive Date: 20100830
  Receipt Date: 20100821
  Transmission Date: 20110219
  Serious: No
  Sender: FDA-Public Use
  Company Number: US-PFIZER INC-2010106141

PATIENT
  Age: 62 Year
  Sex: Female
  Weight: 79.365 kg

DRUGS (4)
  1. LIPITOR [Suspect]
     Indication: BLOOD CHOLESTEROL INCREASED
     Dosage: 10 MG, 1X/DAY
     Dates: start: 20080101
  2. LIPITOR [Suspect]
     Dosage: 20 MG, 1X/DAY
     Route: 048
     Dates: end: 20100814
  3. BENICAR [Concomitant]
     Indication: HYPERTENSION
     Dosage: 40 MG, UNK
  4. DYNACIRC [Concomitant]
     Indication: HYPERTENSION
     Dosage: 50MG IN THE MORNING AND 5MG AT BED TIME

REACTIONS (2)
  - ARTHRALGIA [None]
  - EYE PAIN [None]
